FAERS Safety Report 26094470 (Version 1)
Quarter: 2025Q4

REPORT INFORMATION
  Report Type: Spontaneous
  Country: US (occurrence: US)
  Receive Date: 20251126
  Receipt Date: 20251126
  Transmission Date: 20260117
  Serious: Yes (Other)
  Sender: TG THERAPEUTICS
  Company Number: US-TG THERAPEUTICS INC.-TGT006581

PATIENT

DRUGS (4)
  1. BRIUMVI [Suspect]
     Active Substance: UBLITUXIMAB-XIIY
     Indication: Relapsing multiple sclerosis
     Dosage: 150 MILLIGRAM
     Route: 042
     Dates: start: 20230718, end: 20230718
  2. BRIUMVI [Suspect]
     Active Substance: UBLITUXIMAB-XIIY
     Dosage: 450 MILLIGRAM
     Route: 042
     Dates: start: 20241227, end: 20241227
  3. BRIUMVI [Suspect]
     Active Substance: UBLITUXIMAB-XIIY
     Dosage: 450 MILLIGRAM
     Route: 042
     Dates: start: 20250613, end: 20250613
  4. DALFAMPRIDINE [Concomitant]
     Active Substance: DALFAMPRIDINE
     Indication: Product used for unknown indication
     Dosage: 10 MILLIGRAM

REACTIONS (3)
  - Miscarriage of partner [Unknown]
  - Miscarriage of partner [Unknown]
  - Exposure during pregnancy [Unknown]
